FAERS Safety Report 6181987-6 (Version None)
Quarter: 2009Q2

REPORT INFORMATION
  Report Type: 
  Country: None (occurrence: None)
  Receive Date: 20090505
  Receipt Date: 20090427
  Transmission Date: 20091009
  Serious: Yes (Hospitalization)
  Sender: FDA-Public Use
  Company Number: IPS_01533_2009

PATIENT
  Age: 67 Year
  Sex: Male

DRUGS (2)
  1. APOKYN [Suspect]
     Indication: PARKINSON'S DISEASE
     Dosage: (0.5 ML PRN, ONCE DAILY SUBCUTANEOUS), (0.5 ML PRN, TWICE DAILY SUBCUTANEOUS)
     Route: 058
     Dates: start: 20081001, end: 20090101
  2. APOKYN [Suspect]
     Indication: PARKINSON'S DISEASE
     Dosage: (0.5 ML PRN, ONCE DAILY SUBCUTANEOUS), (0.5 ML PRN, TWICE DAILY SUBCUTANEOUS)
     Route: 058
     Dates: start: 20090101

REACTIONS (3)
  - CONTUSION [None]
  - DYSSTASIA [None]
  - FALL [None]
